FAERS Safety Report 6500423-0 (Version None)
Quarter: 2009Q4

REPORT INFORMATION
  Report Type: 
  Country: None (occurrence: None)
  Receive Date: 20091216
  Receipt Date: 20091207
  Transmission Date: 20100525
  Serious: Yes (Other)
  Sender: FDA-Public Use
  Company Number: PHHY2009CA47079

PATIENT
  Sex: Male

DRUGS (5)
  1. EXJADE [Suspect]
     Indication: MYELOFIBROSIS
     Dosage: 1250 MG, QD
     Route: 048
     Dates: start: 20090822
  2. ALLOPURINOL [Concomitant]
     Dosage: ONE TABLET EVERY NIGHT
  3. SYNTHROID [Concomitant]
  4. TAMSULOSIN [Concomitant]
  5. TAMSULOSIN HYDROCHLORIDE [Concomitant]

REACTIONS (6)
  - CONSTIPATION [None]
  - DYSURIA [None]
  - OEDEMA PERIPHERAL [None]
  - PAIN [None]
  - RASH PRURITIC [None]
  - WEIGHT DECREASED [None]
